FAERS Safety Report 10392373 (Version 8)
Quarter: 2014Q4

REPORT INFORMATION
  Report Type: Report from Study
  Country: ES (occurrence: ES)
  Receive Date: 20140819
  Receipt Date: 20141111
  Transmission Date: 20150528
  Serious: Yes (Life-Threatening, Hospitalization)
  Sender: FDA-Public Use
  Company Number: ES-ROCHE-1446634

PATIENT
  Age: 77 Year
  Sex: Female

DRUGS (19)
  1. NOLOTIL [Concomitant]
     Active Substance: METAMIZOLE
     Route: 042
     Dates: start: 20140801, end: 20140802
  2. CEFTAZIDIMA [Concomitant]
     Route: 065
     Dates: start: 20140802, end: 20140812
  3. ORALDINE [Concomitant]
     Indication: PROPHYLAXIS
     Dosage: UNIT DOSE: 3 MOUTH WASH
     Route: 048
     Dates: start: 20140801
  4. OBINUTUZUMAB [Suspect]
     Active Substance: OBINUTUZUMAB
     Dosage: SPLIT DOSE (100+900)?C1D2?MOST RECENT DOSE PRIOR TO SAE WAS RECEIVED ON 02/AUG/2014.
     Route: 042
     Dates: start: 20140802, end: 20140802
  5. POLARAMINE [Concomitant]
     Active Substance: DEXCHLORPHENIRAMINE MALEATE
     Indication: PREMEDICATION
     Route: 042
     Dates: start: 20140801
  6. OBINUTUZUMAB [Suspect]
     Active Substance: OBINUTUZUMAB
     Dosage: THERAPY RESTARTED ON 27/AUG/2014 AND CONTINUED AS PER PROTOCOL.
     Route: 042
     Dates: start: 20140827, end: 20140827
  7. PARACETAMOL [Concomitant]
     Active Substance: ACETAMINOPHEN
     Indication: PREMEDICATION
     Route: 042
     Dates: start: 20140801
  8. OBINUTUZUMAB [Suspect]
     Active Substance: OBINUTUZUMAB
     Indication: CHRONIC LYMPHOCYTIC LEUKAEMIA
     Dosage: SPLIT DOSE (100+900)?C1D1
     Route: 042
     Dates: start: 20140801, end: 20140801
  9. GRANISETRON [Concomitant]
     Active Substance: GRANISETRON
     Indication: PROPHYLAXIS
     Route: 042
     Dates: start: 20140801
  10. METAMIZOLE [Concomitant]
     Active Substance: METAMIZOLE
     Route: 042
     Dates: start: 20140802, end: 20140802
  11. OBINUTUZUMAB [Suspect]
     Active Substance: OBINUTUZUMAB
     Dosage: C1D8?THERAPY WAS TEMPORARILY INTERRUPTED ON 15/AUG/2014.
     Route: 042
     Dates: start: 20140808, end: 20140808
  12. BENDAMUSTINE [Suspect]
     Active Substance: BENDAMUSTINE
     Indication: CHRONIC LYMPHOCYTIC LEUKAEMIA
     Dosage: PLANNED DOSE: 70 MG/M2?C1D1
     Route: 042
     Dates: start: 20140801, end: 20140801
  13. BENDAMUSTINE [Suspect]
     Active Substance: BENDAMUSTINE
     Dosage: C1D2 THE CONTINUED AS PER PROTOCOL.
     Route: 042
     Dates: start: 20140802, end: 20140802
  14. ZYLORIC [Concomitant]
     Active Substance: ALLOPURINOL
     Indication: PROPHYLAXIS
     Route: 048
     Dates: start: 20140727, end: 20140731
  15. METAMIZOLE [Concomitant]
     Active Substance: METAMIZOLE
     Route: 042
     Dates: start: 20140801, end: 20140801
  16. LACTULOSE. [Concomitant]
     Active Substance: LACTULOSE
     Route: 048
     Dates: start: 20140809, end: 20140811
  17. URBASON [Concomitant]
     Active Substance: METHYLPREDNISOLONE
     Indication: PREMEDICATION
     Route: 042
     Dates: start: 20140801
  18. SEGURIL [Concomitant]
     Active Substance: FUROSEMIDE
     Route: 042
     Dates: start: 20140801, end: 20140801
  19. NYSTATIN. [Concomitant]
     Active Substance: NYSTATIN
     Dosage: NYSTATINE BUCAL?UNIT DOSE: 3 MOUTH WASH
     Route: 065
     Dates: start: 20140801

REACTIONS (1)
  - Febrile neutropenia [Recovered/Resolved]

NARRATIVE: CASE EVENT DATE: 20140801
